FAERS Safety Report 8429951-8 (Version None)
Quarter: 2012Q2

REPORT INFORMATION
  Report Type: 
  Country: None (occurrence: None)
  Receive Date: 20120323
  Receipt Date: 20111205
  Transmission Date: 20120825
  Serious: Yes (Other)
  Sender: FDA-Public Use
  Company Number: 163-21880-11120740

PATIENT
  Age: 72 Year
  Sex: Male

DRUGS (4)
  1. REVLIMID [Suspect]
     Indication: MYELODYSPLASTIC SYNDROME
     Dosage: 10 MG, EVERY OTHER DAY, PO
     Route: 048
     Dates: start: 20110922, end: 20111005
  2. HYDROMORPHONE HCL [Concomitant]
  3. ALBUTEROL [Concomitant]
  4. OXYCODONE HCL [Concomitant]

REACTIONS (1)
  - NEUTROPENIA [None]
